FAERS Safety Report 18210881 (Version 1)
Quarter: 2020Q3

REPORT INFORMATION
  Report Type: Spontaneous
  Country: US (occurrence: US)
  Receive Date: 20200830
  Receipt Date: 20200830
  Transmission Date: 20201103
  Serious: No
  Sender: FDA-Public Use
  Company Number: US-ENDO PHARMACEUTICALS INC-2020-000221

PATIENT
  Age: 62 Year
  Sex: Female
  Weight: 79.38 kg

DRUGS (4)
  1. AMITRIPTYLINE [Concomitant]
     Active Substance: AMITRIPTYLINE
     Indication: HEADACHE
  2. GABAPENTIN. [Concomitant]
     Active Substance: GABAPENTIN
     Indication: NERVE INJURY
  3. PREDNISONE. [Suspect]
     Active Substance: PREDNISONE
     Indication: HORMONE THERAPY
     Dosage: 3.5 DF, DAILY
     Route: 065
     Dates: start: 202001, end: 20200114
  4. LORAZEPAM. [Concomitant]
     Active Substance: LORAZEPAM
     Indication: SLEEP DISORDER

REACTIONS (1)
  - Hunger [Unknown]

NARRATIVE: CASE EVENT DATE: 202001
